FAERS Safety Report 4390328-6 (Version None)
Quarter: 2004Q2

REPORT INFORMATION
  Report Type: 
  Country: None (occurrence: None)
  Receive Date: 20040630
  Receipt Date: 20040616
  Transmission Date: 20050107
  Serious: Yes (Hospitalization)
  Sender: FDA-Public Use
  Company Number: 01P-163-0109907-00

PATIENT
  Age: 48 Year
  Sex: Female
  Weight: 63.5036 kg

DRUGS (24)
  1. BIAXIN [Suspect]
     Indication: ASTHMA
     Dosage: 500 MG, 2 IN 1 D
     Dates: start: 20010504
  2. BIAXIN [Suspect]
     Indication: NASAL CONGESTION
     Dosage: 500 MG, 2 IN 1 D
     Dates: start: 20010504
  3. BIAXIN [Suspect]
     Indication: PHARYNGOLARYNGEAL PAIN
     Dosage: 500 MG, 2 IN 1 D
     Dates: start: 20010504
  4. BIAXIN [Suspect]
     Indication: PYREXIA
     Dosage: 500 MG, 2 IN 1 D
     Dates: start: 20010504
  5. SINGULAIR [Suspect]
     Indication: ASTHMA
     Dosage: 10 MG, 1 IN 1 D, PER ORAL
     Route: 048
     Dates: start: 20010516
  6. VERAPAMIL [Concomitant]
  7. CLONIDINE HCL [Concomitant]
  8. METOPROLOL TARTRATE [Concomitant]
  9. MULTIVITAMIN [Concomitant]
  10. AURALGAN [Concomitant]
  11. ALK-SELTZER COLD [Concomitant]
  12. CORTISPORIN EAR DROPS [Concomitant]
  13. ALLEGRA-D [Concomitant]
  14. ASPIRIN [Concomitant]
  15. ALBUTEROL SULFATE [Concomitant]
  16. SALMETEROL XINAFOATE [Concomitant]
  17. FLUTICASONE PROPIONATE [Concomitant]
  18. PRENISONE [Concomitant]
  19. METHYLPREDNISOLONE SODIUM SUCCINATE [Concomitant]
  20. NICOTINE [Concomitant]
  21. ALUMINIUM HYDROXIDE GEL, DRIED [Concomitant]
  22. BUPROPION HYDROCHLORIDE [Concomitant]
  23. FAMOTIDINE [Concomitant]
  24. OLOPATADINE HYDROCHLORIDE [Concomitant]

REACTIONS (37)
  - ABDOMINAL DISTENSION [None]
  - ABDOMINAL PAIN [None]
  - ANURIA [None]
  - ASTHMA [None]
  - ATRIAL FIBRILLATION [None]
  - BLOOD AMYLASE INCREASED [None]
  - BLOOD PRESSURE DECREASED [None]
  - BLOOD PRESSURE IMMEASURABLE [None]
  - CONDITION AGGRAVATED [None]
  - CYANOSIS [None]
  - DEFAECATION URGENCY [None]
  - DEHYDRATION [None]
  - DIARRHOEA [None]
  - DIZZINESS [None]
  - DYSPNOEA [None]
  - ELECTROCARDIOGRAM ABNORMAL [None]
  - ELECTROCARDIOGRAM QT CORRECTED INTERVAL PROLONGED [None]
  - ELECTROCARDIOGRAM QT CORRECTED INTERVAL SHORTENED [None]
  - FAECAL OCCULT BLOOD POSITIVE [None]
  - FEMORAL PULSE ABNORMAL [None]
  - HAEMATEMESIS [None]
  - HEART RATE DECREASED [None]
  - HEART RATE IRREGULAR [None]
  - HEPATIC FAILURE [None]
  - HEPATORENAL SYNDROME [None]
  - HYPERSENSITIVITY [None]
  - LETHARGY [None]
  - LIPASE INCREASED [None]
  - LUNG INFILTRATION [None]
  - MULTI-ORGAN FAILURE [None]
  - PULSE ABSENT [None]
  - RADIAL PULSE ABNORMAL [None]
  - RENAL FAILURE [None]
  - SEBORRHOEIC KERATOSIS [None]
  - SEPSIS [None]
  - SKIN LESION [None]
  - VOMITING [None]
